FAERS Safety Report 15629550 (Version 1)
Quarter: 2018Q4

REPORT INFORMATION
  Report Type: Report from Study
  Country: JP (occurrence: JP)
  Receive Date: 20181117
  Receipt Date: 20181117
  Transmission Date: 20190205
  Serious: Yes (Hospitalization, Other)
  Sender: FDA-Public Use
  Company Number: JP-AMGEN-JPNNI2018160691

PATIENT
  Age: 65 Year
  Sex: Male
  Weight: 55 kg

DRUGS (13)
  1. DEXAMETHASONE. [Concomitant]
     Active Substance: DEXAMETHASONE
     Dosage: 7.92 MG, UNK
     Route: 065
     Dates: start: 20171023, end: 20171024
  2. CARFILZOMIB [Suspect]
     Active Substance: CARFILZOMIB
     Dosage: 56 MG/M2, QD
     Route: 041
     Dates: start: 20171030, end: 20171031
  3. CARFILZOMIB [Suspect]
     Active Substance: CARFILZOMIB
     Dosage: 56 MG/M2, QD
     Route: 041
     Dates: start: 20171113, end: 20171114
  4. CARFILZOMIB [Suspect]
     Active Substance: CARFILZOMIB
     Dosage: 56 MG/M2, QD
     Route: 041
     Dates: start: 20171120, end: 20171121
  5. CARFILZOMIB [Suspect]
     Active Substance: CARFILZOMIB
     Indication: PLASMA CELL MYELOMA
     Dosage: 20 MG/M2, QD
     Route: 041
     Dates: start: 20171016, end: 20171017
  6. DEXAMETHASONE. [Concomitant]
     Active Substance: DEXAMETHASONE
     Indication: PLASMA CELL MYELOMA
     Dosage: 7.92 MG, UNK
     Route: 065
     Dates: start: 20171016, end: 20171017
  7. DEXAMETHASONE. [Concomitant]
     Active Substance: DEXAMETHASONE
     Dosage: 7.92 MG, UNK
     Route: 065
     Dates: start: 20171030, end: 20171031
  8. DEXAMETHASONE. [Concomitant]
     Active Substance: DEXAMETHASONE
     Dosage: 7.92 MG, UNK
     Route: 065
     Dates: start: 20171113, end: 20171114
  9. DEXAMETHASONE. [Concomitant]
     Active Substance: DEXAMETHASONE
     Dosage: 12 MG, UNK
     Route: 065
     Dates: start: 20180228, end: 20180301
  10. CARFILZOMIB [Suspect]
     Active Substance: CARFILZOMIB
     Dosage: 56 MG/M2, QD
     Route: 041
     Dates: start: 20171127
  11. REVLIMID [Suspect]
     Active Substance: LENALIDOMIDE
     Indication: PLASMA CELL MYELOMA
     Dosage: UNK
     Route: 048
     Dates: start: 20171228
  12. CARFILZOMIB [Suspect]
     Active Substance: CARFILZOMIB
     Dosage: 56 MG/M2, QD
     Route: 041
     Dates: start: 20171023, end: 20171024
  13. CARFILZOMIB [Suspect]
     Active Substance: CARFILZOMIB
     Dosage: 56 MG/M2, QD
     Route: 041
     Dates: start: 20180228, end: 20180301

REACTIONS (2)
  - Cardiac failure [Recovered/Resolved]
  - Enterocolitis [Recovered/Resolved]

NARRATIVE: CASE EVENT DATE: 20171128
